FAERS Safety Report 24327131 (Version 1)
Quarter: 2024Q3

REPORT INFORMATION
  Report Type: Spontaneous
  Country: US (occurrence: None)
  Receive Date: 20240916
  Receipt Date: 20240916
  Transmission Date: 20241017
  Serious: Yes (Hospitalization)
  Sender: Public
  Company Number: None

PATIENT
  Sex: Male

DRUGS (4)
  1. DEVICE [Suspect]
     Active Substance: DEVICE
  2. EPOPROSTENOL [Concomitant]
     Dosage: OTHER FREQUENCY : CONTINUOUS;?
     Route: 042
     Dates: start: 202210
  3. VINREVAIR SDV [Concomitant]
  4. EPOPROSTENOL SDV G-VELETRI [Concomitant]

REACTIONS (2)
  - Diarrhoea [None]
  - Device malfunction [None]
